FAERS Safety Report 8924478 (Version 1)
Quarter: 2012Q4

REPORT INFORMATION
  Report Type: 
  Country: CA (occurrence: CA)
  Receive Date: 20121127
  Receipt Date: 20121127
  Transmission Date: 20130627
  Serious: Yes (Death, Other)
  Sender: FDA-Public Use
  Company Number: CA-AMGEN-CANSP2012075591

PATIENT
  Age: 42 Year

DRUGS (5)
  1. NEUPOGEN [Suspect]
     Indication: PRODUCT USED FOR UNKNOWN INDICATION
     Dosage: UNK
  2. ADRIAMYCIN                         /00330901/ [Concomitant]
     Dosage: UNK
  3. BLEOMYCIN [Concomitant]
     Dosage: UNK
  4. VINBLASTINE [Concomitant]
     Dosage: UNK
  5. DACARBAZINE                        /00372802/ [Concomitant]
     Dosage: UNK

REACTIONS (1)
  - Pulmonary toxicity [Fatal]
